FAERS Safety Report 13505559 (Version 1)
Quarter: 2017Q2

REPORT INFORMATION
  Report Type: Spontaneous
  Country: US (occurrence: US)
  Receive Date: 20170502
  Receipt Date: 20170502
  Transmission Date: 20170830
  Serious: No
  Sender: FDA-Public Use
  Company Number: US-ASTRAZENECA-2016SE79468

PATIENT
  Age: 24785 Day
  Sex: Female
  Weight: 64 kg

DRUGS (1)
  1. BYDUREON [Suspect]
     Active Substance: EXENATIDE
     Indication: TYPE 2 DIABETES MELLITUS
     Route: 058
     Dates: start: 20160712

REACTIONS (2)
  - Injection site discolouration [Unknown]
  - Injection site pain [Unknown]

NARRATIVE: CASE EVENT DATE: 20160719
